FAERS Safety Report 8975948 (Version 3)
Quarter: 2013Q1

REPORT INFORMATION
  Report Type: Spontaneous
  Country: JP (occurrence: JP)
  Receive Date: 20121219
  Receipt Date: 20130314
  Transmission Date: 20140127
  Serious: Yes (Life-Threatening, Hospitalization)
  Sender: FDA-Public Use
  Company Number: JP-GLAXOSMITHKLINE-B0853440A

PATIENT
  Age: 61 Year
  Sex: Female

DRUGS (9)
  1. LAMICTAL [Suspect]
     Indication: EPILEPSY
     Dosage: 25MG ALTERNATE DAYS
     Route: 048
     Dates: start: 20121127, end: 20121211
  2. DEPAKENE-R [Concomitant]
     Indication: EPILEPSY
     Dosage: 400MG TWICE PER DAY
     Route: 048
     Dates: start: 20110222, end: 20121212
  3. E KEPPRA [Concomitant]
     Indication: EPILEPSY
     Dosage: 1500MG TWICE PER DAY
     Route: 048
     Dates: start: 20110829, end: 20121212
  4. LIPITOR [Concomitant]
     Indication: HYPERLIPIDAEMIA
     Dosage: 10MG PER DAY
     Route: 048
     Dates: end: 20121212
  5. FERROMIA [Concomitant]
     Indication: ANAEMIA
     Dosage: 50MG PER DAY
     Route: 048
     Dates: end: 20121211
  6. NORVASC [Concomitant]
     Dosage: 5MG PER DAY
     Route: 048
  7. ACECOL [Concomitant]
     Dosage: 2MG PER DAY
     Route: 048
  8. THYRADIN S [Concomitant]
     Dosage: 75MCG PER DAY
     Route: 048
  9. UNKNOWN DRUG [Concomitant]
     Route: 065

REACTIONS (66)
  - Drug reaction with eosinophilia and systemic symptoms [Recovering/Resolving]
  - Pyrexia [Unknown]
  - Rash [Unknown]
  - Disseminated intravascular coagulation [Recovered/Resolved]
  - Multi-organ failure [Unknown]
  - Rhabdomyolysis [Unknown]
  - Gastrointestinal haemorrhage [Recovered/Resolved]
  - Sepsis [Unknown]
  - Skin disorder [Unknown]
  - Shock [Unknown]
  - Renal failure acute [Recovered/Resolved]
  - Renal impairment [Unknown]
  - Pericardial effusion [Unknown]
  - Tubulointerstitial nephritis [Unknown]
  - Hyperthermia [Unknown]
  - Erythema [Recovering/Resolving]
  - Drug eruption [Unknown]
  - Aspartate aminotransferase increased [Unknown]
  - Alanine aminotransferase increased [Unknown]
  - Blood lactate dehydrogenase increased [Unknown]
  - Blood creatine phosphokinase increased [Unknown]
  - Blood urea increased [Unknown]
  - Blood creatinine increased [Unknown]
  - C-reactive protein increased [Unknown]
  - White blood cell count increased [Unknown]
  - Platelet count decreased [Unknown]
  - Neutrophil percentage increased [Unknown]
  - Lymphocyte percentage decreased [Unknown]
  - Blood sodium decreased [Unknown]
  - Blood potassium decreased [Unknown]
  - Red blood cell count decreased [Unknown]
  - Haemoglobin decreased [Unknown]
  - Haematocrit decreased [Unknown]
  - Chills [Unknown]
  - Decreased appetite [Unknown]
  - Rash [Unknown]
  - Condition aggravated [Unknown]
  - Anaemia [Unknown]
  - Flushing [Unknown]
  - Petechiae [Unknown]
  - Peripheral coldness [Unknown]
  - Faeces discoloured [Unknown]
  - Faeces discoloured [Unknown]
  - Eyelid oedema [Unknown]
  - Conjunctival oedema [Unknown]
  - Pleural effusion [Unknown]
  - Kidney enlargement [Unknown]
  - Vascular calcification [Unknown]
  - Vasodilatation [Unknown]
  - Renal disorder [Unknown]
  - Hepatic function abnormal [Recovered/Resolved]
  - Mucous membrane disorder [Unknown]
  - Tachycardia [Unknown]
  - Obstructive airways disorder [Unknown]
  - Bradycardia [Unknown]
  - Acidosis [Unknown]
  - Oliguria [Unknown]
  - Hypokalaemia [Recovering/Resolving]
  - Fluid retention [Unknown]
  - Fat tissue increased [Unknown]
  - Ventricular hyperkinesia [Unknown]
  - Inflammation [Unknown]
  - Hypersensitivity [Unknown]
  - Capillary permeability increased [Recovering/Resolving]
  - Blood beta-D-glucan increased [Unknown]
  - Diarrhoea [Unknown]
